FAERS Safety Report 4846272-0 (Version None)
Quarter: 2005Q4

REPORT INFORMATION
  Report Type: 
  Country: None (occurrence: None)
  Receive Date: 20051130
  Receipt Date: 20051116
  Transmission Date: 20060501
  Serious: Yes (Death, Life-Threatening, Hospitalization)
  Sender: FDA-Public Use
  Company Number: US016178

PATIENT
  Age: 52 Year
  Sex: Female

DRUGS (7)
  1. GABITRIL [Suspect]
  2. ACETAMINOPHEN AND HYDROCODONE BITARTRATE [Suspect]
  3. AMITRIPTYLINE HCL [Suspect]
  4. ESCITALOPRAM OXALATE [Suspect]
  5. CYCLOBENZAPRINE HCL [Suspect]
  6. PIOGLITAZONE HCL [Suspect]
  7. LOVASTATIN [Suspect]

REACTIONS (9)
  - CARDIAC ARREST [None]
  - COMPLETED SUICIDE [None]
  - DEPRESSED LEVEL OF CONSCIOUSNESS [None]
  - FEELING ABNORMAL [None]
  - MULTIPLE DRUG OVERDOSE INTENTIONAL [None]
  - MYOCARDIAL INFARCTION [None]
  - PULMONARY OEDEMA [None]
  - SEPSIS [None]
  - TACHYCARDIA [None]
